FAERS Safety Report 19805309 (Version 2)
Quarter: 2021Q4

REPORT INFORMATION
  Report Type: Spontaneous
  Country: US (occurrence: US)
  Receive Date: 20210909
  Receipt Date: 20211102
  Transmission Date: 20220304
  Serious: No
  Sender: FDA-Public Use
  Company Number: US-HETERO-HET2021US01710

PATIENT
  Age: 58 Year
  Sex: Male

DRUGS (1)
  1. SILDENAFIL [Suspect]
     Active Substance: SILDENAFIL
     Indication: Erectile dysfunction
     Dosage: 100 MG, UNK
     Route: 048
     Dates: end: 20210903

REACTIONS (1)
  - Drug ineffective [Unknown]
